FAERS Safety Report 7371519-9 (Version None)
Quarter: 2011Q1

REPORT INFORMATION
  Report Type: 
  Country: None (occurrence: None)
  Receive Date: 20110322
  Receipt Date: 20110322
  Transmission Date: 20110831
  Serious: Yes (Other)
  Sender: FDA-Public Use
  Company Number: None

PATIENT
  Age: 56 Year
  Sex: Male
  Weight: 113.3993 kg

DRUGS (1)
  1. METFORMIN HCL [Suspect]
     Indication: TYPE 2 DIABETES MELLITUS
     Dosage: 2 TABS DAILY -AM PM MEAL- PO
     Route: 048
     Dates: start: 20110201, end: 20110310

REACTIONS (4)
  - FLATULENCE [None]
  - PRODUCT ODOUR ABNORMAL [None]
  - DIARRHOEA [None]
  - PRODUCT QUALITY ISSUE [None]
